FAERS Safety Report 6019547-X (Version None)
Quarter: 2008Q4

REPORT INFORMATION
  Report Type: 
  Country: None (occurrence: None)
  Receive Date: 20081224
  Receipt Date: 20081212
  Transmission Date: 20090506
  Serious: Yes (Other)
  Sender: FDA-Public Use
  Company Number: PHHY2008JP30696

PATIENT
  Weight: 94.5 kg

DRUGS (3)
  1. DIOVAN [Suspect]
     Dosage: 40 MG
     Route: 048
  2. DIOVAN [Suspect]
     Dosage: 80 MG
     Route: 048
  3. CILNIDIPINE [Concomitant]
     Dosage: 5 MG

REACTIONS (7)
  - ATRIOVENTRICULAR BLOCK [None]
  - BLOOD CREATININE INCREASED [None]
  - BLOOD POTASSIUM INCREASED [None]
  - DEHYDRATION [None]
  - HYPERKALAEMIA [None]
  - RENAL IMPAIRMENT [None]
  - VOMITING [None]
